FAERS Safety Report 20249163 (Version 1)
Quarter: 2021Q4

REPORT INFORMATION
  Report Type: Spontaneous
  Country: US (occurrence: None)
  Receive Date: 20211228
  Receipt Date: 20211228
  Transmission Date: 20220303
  Serious: No
  Sender: FDA-Public Use
  Company Number: None

PATIENT
  Age: 81 Year
  Sex: Female

DRUGS (1)
  1. AMBRISENTAN [Suspect]
     Active Substance: AMBRISENTAN
     Dosage: FREQUENCY : DAILY;?
     Route: 048
     Dates: start: 20200726

REACTIONS (6)
  - Cerebrovascular accident [None]
  - Cerebral thrombosis [None]
  - Pain [None]
  - Pain in extremity [None]
  - Phantom limb syndrome [None]
  - Cerebral disorder [None]

NARRATIVE: CASE EVENT DATE: 20211205
